FAERS Safety Report 24461079 (Version 1)
Quarter: 2024Q4

REPORT INFORMATION
  Report Type: Spontaneous
  Country: CN (occurrence: CN)
  Receive Date: 20241018
  Receipt Date: 20241018
  Transmission Date: 20250115
  Serious: No
  Sender: ROCHE
  Company Number: CN-ROCHE-3574796

PATIENT
  Age: 68 Year
  Sex: Male

DRUGS (15)
  1. MABTHERA [Suspect]
     Active Substance: RITUXIMAB
     Indication: Diffuse large B-cell lymphoma
     Dosage: 15-SEP-2023,08-OCT-2023
     Route: 065
     Dates: start: 20230817
  2. MABTHERA [Suspect]
     Active Substance: RITUXIMAB
     Dosage: 05-NOV-2023,02-DEC-2023,24-DEC-2023
     Route: 065
     Dates: start: 20231105
  3. GAZYVA [Suspect]
     Active Substance: OBINUTUZUMAB
     Indication: Diffuse large B-cell lymphoma
     Dosage: D1
     Route: 042
     Dates: start: 20240329
  4. COLUMVI [Suspect]
     Active Substance: GLOFITAMAB-GXBM
     Indication: Diffuse large B-cell lymphoma
     Dosage: D8
     Route: 065
     Dates: start: 20240405
  5. COLUMVI [Suspect]
     Active Substance: GLOFITAMAB-GXBM
     Dosage: D15
     Route: 065
     Dates: start: 20240412
  6. COLUMVI [Suspect]
     Active Substance: GLOFITAMAB-GXBM
     Dosage: 19-APR-2024,10-MAY-2024
     Route: 065
     Dates: start: 20240419
  7. INDOMETHACIN [Concomitant]
     Active Substance: INDOMETHACIN
     Indication: Diffuse large B-cell lymphoma
  8. IBUPROFEN [Concomitant]
     Active Substance: IBUPROFEN
     Indication: Diffuse large B-cell lymphoma
  9. METHOTREXATE [Concomitant]
     Active Substance: METHOTREXATE
     Indication: Diffuse large B-cell lymphoma
     Dosage: D1:17-AUG-2023,15-SEP-2023,08-OCT-2023
     Dates: start: 20230817
  10. METHOTREXATE [Concomitant]
     Active Substance: METHOTREXATE
     Dosage: 05-NOV-2023,02-DEC-2023,24-DEC-2023
     Dates: start: 20231105
  11. CYTARABINE [Concomitant]
     Active Substance: CYTARABINE
     Indication: Diffuse large B-cell lymphoma
     Dosage: D2:17-AUG-2023,15-SEP-2023,08-OCT-2023
     Dates: start: 20230817
  12. CYTARABINE [Concomitant]
     Active Substance: CYTARABINE
     Dosage: 05-NOV-2023,02-DEC-2023,24-DEC-2023
     Dates: start: 20231105
  13. THIOTEPA [Concomitant]
     Active Substance: THIOTEPA
     Indication: Diffuse large B-cell lymphoma
     Dosage: D3:17-AUG-2023,15-SEP-2023,08-OCT-2023
     Dates: start: 20230817
  14. DEXAMETHASONE [Concomitant]
     Active Substance: DEXAMETHASONE
     Indication: Diffuse large B-cell lymphoma
     Dosage: D1-5:17-AUG-2023,15-SEP-2023,08-OCT-2023
     Dates: start: 20230817
  15. DEXAMETHASONE [Concomitant]
     Active Substance: DEXAMETHASONE
     Dosage: 05-NOV-2023,02-DEC-2023,24-DEC-2023
     Dates: start: 20231105

REACTIONS (2)
  - Myelosuppression [Unknown]
  - Off label use [Unknown]
